FAERS Safety Report 24767367 (Version 2)
Quarter: 2025Q1

REPORT INFORMATION
  Report Type: Report from Study
  Country: US (occurrence: US)
  Receive Date: 20241223
  Receipt Date: 20250212
  Transmission Date: 20250409
  Serious: Yes (Death)
  Sender: CSL BEHRING
  Company Number: US-BEH-2024188526

PATIENT
  Sex: Male

DRUGS (1)
  1. VELPHORO [Suspect]
     Active Substance: SUCROFERRIC OXYHYDROXIDE
     Indication: Product used for unknown indication
     Dosage: 500 MG, QD
     Route: 048
     Dates: end: 20240814

REACTIONS (1)
  - Death [Fatal]

NARRATIVE: CASE EVENT DATE: 20240814
